FAERS Safety Report 11696853 (Version 5)
Quarter: 2015Q4

REPORT INFORMATION
  Report Type: Spontaneous
  Country: GB (occurrence: GB)
  Receive Date: 20151104
  Receipt Date: 20151216
  Transmission Date: 20160304
  Serious: Yes (Life-Threatening, Hospitalization)
  Sender: FDA-Public Use
  Company Number: GB-JNJFOC-20151101551

PATIENT

DRUGS (1)
  1. REMICADE [Suspect]
     Active Substance: INFLIXIMAB
     Indication: INFLAMMATORY BOWEL DISEASE
     Route: 042
     Dates: start: 20151028

REACTIONS (8)
  - C-reactive protein increased [Unknown]
  - Loss of consciousness [Unknown]
  - Inappropriate schedule of drug administration [Unknown]
  - Product contamination [Unknown]
  - Infusion related reaction [Unknown]
  - White blood cell count increased [Unknown]
  - Immune system disorder [Recovering/Resolving]
  - Tachycardia [Unknown]

NARRATIVE: CASE EVENT DATE: 20151020
